FAERS Safety Report 6344538-9 (Version None)
Quarter: 2009Q3

REPORT INFORMATION
  Report Type: 
  Country: None (occurrence: None)
  Receive Date: 20090908
  Receipt Date: 20090825
  Transmission Date: 20100115
  Serious: Yes (Disabling)
  Sender: FDA-Public Use
  Company Number: US-CVT-090512

PATIENT

DRUGS (2)
  1. RANEXA [Suspect]
     Indication: ANGINA PECTORIS
     Dosage: 1000 MG, BID
     Route: 048
  2. RANEXA [Suspect]
     Dosage: 500 MG, BID
     Route: 048

REACTIONS (1)
  - NEUROPATHY PERIPHERAL [None]
